FAERS Safety Report 4660100-8 (Version None)
Quarter: 2005Q2

REPORT INFORMATION
  Report Type: 
  Country: None (occurrence: None)
  Receive Date: 20050510
  Receipt Date: 20050502
  Transmission Date: 20051028
  Serious: Yes (Other)
  Sender: FDA-Public Use
  Company Number: 800362

PATIENT
  Age: 56 Year
  Sex: Male

DRUGS (8)
  1. DIANEAL PD4, ULTRABAG CONTAINER [Suspect]
     Dosage: 3 L; QID; INTRAPERITONEAL
     Route: 033
     Dates: start: 20050101
  2. ASPIRIN [Concomitant]
  3. NPH INSULIN 70/30 [Concomitant]
  4. RENAGEL [Concomitant]
  5. BACTROBAN [Concomitant]
  6. RANITIDINE HYDROCHLORIDE [Concomitant]
  7. ARANESP [Concomitant]
  8. SIMVASTATIN [Concomitant]

REACTIONS (8)
  - BACTERIAL INFECTION [None]
  - DEVICE FAILURE [None]
  - DIARRHOEA [None]
  - LYMPHOCYTE PERCENTAGE DECREASED [None]
  - MONOCYTE PERCENTAGE INCREASED [None]
  - NEUTROPHIL PERCENTAGE INCREASED [None]
  - PERITONITIS [None]
  - WHITE BLOOD CELL COUNT DECREASED [None]
